FAERS Safety Report 14317358 (Version 4)
Quarter: 2019Q1

REPORT INFORMATION
  Report Type: Report from Study
  Country: US (occurrence: US)
  Receive Date: 20171222
  Receipt Date: 20190208
  Transmission Date: 20190417
  Serious: Yes (Hospitalization)
  Sender: FDA-Public Use
  Company Number: US-ROCHE-2039642

PATIENT
  Age: 53 Year
  Sex: Female
  Weight: 116.3 kg

DRUGS (24)
  1. FLOVENT HFA [Concomitant]
     Active Substance: FLUTICASONE PROPIONATE
     Dosage: PER ACT
     Route: 065
     Dates: start: 20160331
  2. TRULICITY [Concomitant]
     Active Substance: DULAGLUTIDE
     Route: 065
     Dates: start: 2017
  3. VALSARTAN. [Concomitant]
     Active Substance: VALSARTAN
     Route: 065
     Dates: start: 20160324
  4. TOCILIZUMAB. [Suspect]
     Active Substance: TOCILIZUMAB
     Indication: DERMATOMYOSITIS
     Dosage: STRENGTH: 200MG/10ML
     Route: 042
     Dates: start: 20171018
  5. VITAMIN E [Concomitant]
     Active Substance: .ALPHA.-TOCOPHEROL
     Dosage: 400 UNIT
     Route: 065
     Dates: start: 201701
  6. CYMBALTA [Concomitant]
     Active Substance: DULOXETINE HYDROCHLORIDE
  7. DEXTROSE. [Concomitant]
     Active Substance: DEXTROSE
     Route: 065
  8. HEPARIN [Concomitant]
     Active Substance: HEPARIN SODIUM
  9. ALLOPURINOL. [Concomitant]
     Active Substance: ALLOPURINOL
     Route: 065
  10. PREGABALIN. [Concomitant]
     Active Substance: PREGABALIN
  11. HYDROXYZINE HYDROCHLORIDE. [Concomitant]
     Active Substance: HYDROXYZINE HYDROCHLORIDE
     Route: 065
     Dates: start: 20160406
  12. COLCHICINE. [Concomitant]
     Active Substance: COLCHICINE
     Dosage: 0/6 MG
     Route: 065
     Dates: start: 20160524
  13. DEXTROSE. [Concomitant]
     Active Substance: DEXTROSE
     Route: 065
  14. TOCILIZUMAB. [Suspect]
     Active Substance: TOCILIZUMAB
     Route: 042
     Dates: start: 20171114
  15. PREDNISONE. [Concomitant]
     Active Substance: PREDNISONE
     Route: 065
     Dates: start: 20170131
  16. LYRICA [Concomitant]
     Active Substance: PREGABALIN
     Route: 065
  17. DIOVAN [Concomitant]
     Active Substance: VALSARTAN
  18. LANTUS [Concomitant]
     Active Substance: INSULIN GLARGINE
     Route: 065
     Dates: start: 20160524
  19. TIZANIDINE HCL [Concomitant]
     Active Substance: TIZANIDINE HYDROCHLORIDE
     Route: 065
     Dates: start: 20160401
  20. MYCOPHENOLATE MOFETIL. [Concomitant]
     Active Substance: MYCOPHENOLATE MOFETIL
  21. SODIUM CHLORIDE. [Concomitant]
     Active Substance: SODIUM CHLORIDE
  22. GLUCAGON. [Concomitant]
     Active Substance: GLUCAGON
  23. FLUTICASONE PROPIONATE INHALER [Concomitant]
     Active Substance: FLUTICASONE PROPIONATE
  24. LANTUS [Concomitant]
     Active Substance: INSULIN GLARGINE

REACTIONS (1)
  - Pulmonary embolism [Not Recovered/Not Resolved]

NARRATIVE: CASE EVENT DATE: 20171206
